FAERS Safety Report 6189212-7 (Version None)
Quarter: 2009Q2

REPORT INFORMATION
  Report Type: 
  Country: None (occurrence: None)
  Receive Date: 20090513
  Receipt Date: 20090428
  Transmission Date: 20091009
  Serious: Yes (Hospitalization)
  Sender: FDA-Public Use
  Company Number: FR-GENENTECH-282740

PATIENT
  Sex: Male

DRUGS (3)
  1. RITUXIMAB [Suspect]
     Indication: CHRONIC LYMPHOCYTIC LEUKAEMIA
     Dosage: 955 MG, QD
     Route: 042
     Dates: start: 20080819, end: 20080819
  2. CYCLOPHOSPHAMIDE [Suspect]
     Indication: CHRONIC LYMPHOCYTIC LEUKAEMIA
     Dosage: 450 MG, QD
     Route: 002
     Dates: start: 20080820, end: 20080822
  3. FLUDARABINE PHOSPHATE [Suspect]
     Indication: CHRONIC LYMPHOCYTIC LEUKAEMIA
     Dosage: 70 MG, QD
     Route: 002
     Dates: start: 20080820, end: 20080822

REACTIONS (1)
  - CHEST PAIN [None]
